FAERS Safety Report 14492029 (Version 1)
Quarter: 2018Q1

REPORT INFORMATION
  Report Type: Report from Study
  Country: VN (occurrence: VN)
  Receive Date: 20180206
  Receipt Date: 20180206
  Transmission Date: 20180509
  Serious: Yes (Other)
  Sender: FDA-Public Use
  Company Number: VN-ASTELLAS-2017US056336

PATIENT
  Age: 56 Year
  Sex: Male

DRUGS (2)
  1. ERLOTINIB [Suspect]
     Active Substance: ERLOTINIB
     Route: 048
     Dates: start: 20171211
  2. ERLOTINIB [Suspect]
     Active Substance: ERLOTINIB
     Indication: LUNG NEOPLASM MALIGNANT
     Route: 048

REACTIONS (12)
  - Ageusia [Not Recovered/Not Resolved]
  - Hair texture abnormal [Unknown]
  - Intentional product misuse [Unknown]
  - Hair growth abnormal [Unknown]
  - Rash pruritic [Not Recovered/Not Resolved]
  - Pulmonary fibrosis [Unknown]
  - Mucosal dryness [Not Recovered/Not Resolved]
  - Nail disorder [Not Recovered/Not Resolved]
  - Onychoclasis [Not Recovered/Not Resolved]
  - Nail ridging [Not Recovered/Not Resolved]
  - Dry skin [Not Recovered/Not Resolved]
  - Product taste abnormal [Unknown]
